FAERS Safety Report 9846199 (Version 2)
Quarter: 2014Q1

REPORT INFORMATION
  Report Type: Spontaneous
  Country: MY (occurrence: MY)
  Receive Date: 20140127
  Receipt Date: 20140326
  Transmission Date: 20141002
  Serious: Yes (Other)
  Sender: FDA-Public Use
  Company Number: MY-PFIZER INC-2014019344

PATIENT
  Age: 49 Year
  Sex: Male
  Weight: 65 kg

DRUGS (6)
  1. DETRUSITOL [Suspect]
     Indication: BENIGN PROSTATIC HYPERPLASIA
     Dosage: 4 MG, DAILY
     Route: 048
     Dates: start: 20120514, end: 20120515
  2. HARNAL OCAS [Suspect]
     Indication: BENIGN PROSTATIC HYPERPLASIA
     Dosage: 400 UG, DAILY
     Route: 048
     Dates: start: 20120514, end: 20120515
  3. BETAHISTINE [Concomitant]
     Indication: VERTIGO
     Dosage: 24 MG, 1X/DAY
     Dates: start: 201106
  4. CITRIC ACID [Concomitant]
     Dosage: UNK
  5. TARTARIC ACID [Concomitant]
     Dosage: UNK
  6. SODIUM CITRATE [Concomitant]
     Indication: URINARY TRACT DISORDER
     Dosage: 1 DF, 3X/DAY
     Dates: start: 201106

REACTIONS (4)
  - Dyspnoea [Recovered/Resolved]
  - Hypoaesthesia [Recovered/Resolved]
  - Rhinorrhoea [Recovered/Resolved]
  - Off label use [Unknown]
